FAERS Safety Report 9565804 (Version 2)
Quarter: 2013Q4

REPORT INFORMATION
  Report Type: Report from Study
  Country: BR (occurrence: BR)
  Receive Date: 20130930
  Receipt Date: 20131028
  Transmission Date: 20140711
  Serious: Yes (Life-Threatening, Other)
  Sender: FDA-Public Use
  Company Number: PHHY2013BR108228

PATIENT
  Sex: Male

DRUGS (3)
  1. FORASEQ [Suspect]
     Indication: BRONCHITIS
     Dosage: 12/400MCG, 5 YEARS AGO
  2. FORASEQ [Suspect]
     Dosage: IN DAWN, AT MORNING AND AT NIGHT
  3. FORASEQ [Suspect]
     Dosage: BID (IN THE MORNING AND AT NIGHT)

REACTIONS (6)
  - Feeling abnormal [Not Recovered/Not Resolved]
  - Bronchitis [Recovered/Resolved]
  - Dyspnoea [Recovered/Resolved]
  - Malaise [Unknown]
  - Hypertension [Recovered/Resolved]
  - Condition aggravated [Unknown]
